FAERS Safety Report 24882138 (Version 1)
Quarter: 2025Q1

REPORT INFORMATION
  Report Type: Other
  Country: IN (occurrence: IN)
  Receive Date: 20250124
  Receipt Date: 20250124
  Transmission Date: 20250409
  Serious: Yes (Death, Other)
  Sender: ANI
  Company Number: IN-ANIPHARMA-015430

PATIENT
  Age: 17 Year
  Sex: Female

DRUGS (3)
  1. CYCLOPHOSPHAMIDE [Suspect]
     Active Substance: CYCLOPHOSPHAMIDE
     Indication: Rhabdomyosarcoma
  2. VINCRISTINE [Concomitant]
     Active Substance: VINCRISTINE
     Indication: Rhabdomyosarcoma
  3. DACTINOMYCIN [Concomitant]
     Active Substance: DACTINOMYCIN
     Indication: Rhabdomyosarcoma

REACTIONS (4)
  - Cardiac arrest [Fatal]
  - Febrile neutropenia [Unknown]
  - Septic shock [Fatal]
  - Acute kidney injury [Fatal]
